FAERS Safety Report 6845542-4 (Version None)
Quarter: 2010Q3

REPORT INFORMATION
  Report Type: 
  Country: None (occurrence: None)
  Receive Date: 20100715
  Receipt Date: 20070820
  Transmission Date: 20110219
  Serious: No
  Sender: FDA-Public Use
  Company Number: US-PFIZER INC-2007071880

PATIENT
  Age: 60 Year
  Sex: Male
  Weight: 84.1 kg

DRUGS (2)
  1. CHANTIX [Suspect]
     Indication: SMOKING CESSATION THERAPY
     Route: 048
     Dates: start: 20070501, end: 20070801
  2. ANTIHYPERTENSIVES [Concomitant]
     Indication: HYPERTENSION

REACTIONS (5)
  - COUGH [None]
  - DYSPHONIA [None]
  - FEELING ABNORMAL [None]
  - RASH [None]
  - THROAT IRRITATION [None]
